FAERS Safety Report 11862870 (Version 2)
Quarter: 2016Q1

REPORT INFORMATION
  Report Type: Report from Study
  Country: US (occurrence: US)
  Receive Date: 20151223
  Receipt Date: 20160118
  Transmission Date: 20160526
  Serious: Yes (Hospitalization, Other)
  Sender: FDA-Public Use
  Company Number: US-AMGEN-USASL2015135570

PATIENT
  Age: 55 Year
  Sex: Female

DRUGS (1)
  1. ENBREL [Suspect]
     Active Substance: ETANERCEPT
     Indication: RHEUMATOID ARTHRITIS
     Dosage: 50 MG, ONCE WEEK
     Route: 065
     Dates: start: 20151215, end: 20151229

REACTIONS (13)
  - Abdominal pain [Unknown]
  - Stent placement [Unknown]
  - Kidney infection [Unknown]
  - Urinary incontinence [Unknown]
  - Nervousness [Unknown]
  - Head discomfort [Unknown]
  - Arthralgia [Unknown]
  - Nausea [Unknown]
  - Urinary tract infection [Unknown]
  - Abdominal discomfort [Unknown]
  - Sepsis [Unknown]
  - Feeling abnormal [Recovered/Resolved]
  - Vomiting [Unknown]

NARRATIVE: CASE EVENT DATE: 201512
